FAERS Safety Report 5866136-3 (Version None)
Quarter: 2008Q3

REPORT INFORMATION
  Report Type: 
  Country: None (occurrence: None)
  Receive Date: 20080829
  Receipt Date: 20080820
  Transmission Date: 20090109
  Serious: Yes (Other)
  Sender: FDA-Public Use
  Company Number: US-PFIZER INC-2008069573

PATIENT
  Sex: Female

DRUGS (7)
  1. PROVERA [Suspect]
     Indication: MENOPAUSE
     Route: 048
     Dates: start: 19960204, end: 19980524
  2. DEPO-PROVERA SUSPENSION/INJ [Suspect]
     Indication: MENOPAUSE
  3. CLIMARA [Suspect]
     Route: 062
  4. ESTRACE [Suspect]
  5. ESTRADERM [Suspect]
     Indication: MENOPAUSE
     Dates: start: 19960204, end: 19990630
  6. ESTROGEN NOS [Suspect]
     Indication: MENOPAUSE
  7. CYCRIN [Suspect]
     Indication: MENOPAUSE

REACTIONS (1)
  - BREAST CANCER [None]
